FAERS Safety Report 25361344 (Version 2)
Quarter: 2025Q2

REPORT INFORMATION
  Report Type: Spontaneous
  Country: US (occurrence: US)
  Receive Date: 20250527
  Receipt Date: 20250620
  Transmission Date: 20250717
  Serious: Yes (Other)
  Sender: NOVARTIS
  Company Number: US-002147023-NVSC2025US084706

PATIENT
  Sex: Male

DRUGS (2)
  1. COSENTYX [Suspect]
     Active Substance: SECUKINUMAB
     Indication: Product used for unknown indication
     Route: 065
  2. COSENTYX [Suspect]
     Active Substance: SECUKINUMAB
     Route: 065

REACTIONS (2)
  - Colitis [Unknown]
  - Gastrointestinal disorder [Unknown]
